FAERS Safety Report 8970846 (Version 2)
Quarter: 2013Q1

REPORT INFORMATION
  Report Type: Spontaneous
  Country: US (occurrence: US)
  Receive Date: 20121211
  Receipt Date: 20130114
  Transmission Date: 20140127
  Serious: No
  Sender: FDA-Public Use
  Company Number: US-PFIZER INC-2012306501

PATIENT
  Age: 59 Year
  Sex: Female
  Weight: 61.22 kg

DRUGS (3)
  1. EFFEXOR XR [Suspect]
     Dosage: UNK
  2. VENLAFAXINE HYDROCHLORIDE [Suspect]
     Indication: MENTAL DISORDER
     Dosage: 37.5 MG, 3X/DAY
     Dates: start: 2009, end: 2009
  3. HYDROCODONE [Concomitant]
     Indication: ARTHRITIS
     Dosage: 10/500MG AS HALF A TABLET, 3X/DAY

REACTIONS (6)
  - Oropharyngeal pain [Unknown]
  - Amnesia [Unknown]
  - Mental disorder [Unknown]
  - Fall [Recovered/Resolved]
  - Areflexia [Recovered/Resolved]
  - Fatigue [Recovered/Resolved]
